FAERS Safety Report 10696538 (Version 1)
Quarter: 2015Q1

REPORT INFORMATION
  Report Type: Report from Study
  Country: US (occurrence: US)
  Receive Date: 20150107
  Receipt Date: 20150107
  Transmission Date: 20150721
  Serious: Yes (Hospitalization, Other)
  Sender: FDA-Public Use
  Company Number: US-GILEAD-2015-0130397

PATIENT
  Age: 71 Year
  Sex: Male

DRUGS (3)
  1. RIBAVIRIN. [Concomitant]
     Active Substance: RIBAVIRIN
     Indication: CHRONIC HEPATITIS C
     Dosage: UNK, BID
     Route: 065
     Dates: start: 20141015
  2. LACTULOSE. [Concomitant]
     Active Substance: LACTULOSE
     Indication: HEPATIC ENCEPHALOPATHY
     Dosage: UNK
     Route: 048
  3. SOFOSBUVIR [Suspect]
     Active Substance: SOFOSBUVIR
     Indication: CHRONIC HEPATITIS C
     Dosage: 400 MG, QD
     Route: 048
     Dates: start: 20141015

REACTIONS (10)
  - Abdominal discomfort [Unknown]
  - Fatigue [Unknown]
  - Frequent bowel movements [Unknown]
  - Haemoglobin decreased [Unknown]
  - Hepatic encephalopathy [Unknown]
  - Somnolence [Unknown]
  - Confusional state [Unknown]
  - Constipation [Unknown]
  - Gait disturbance [Unknown]
  - Blood potassium decreased [Unknown]

NARRATIVE: CASE EVENT DATE: 20141022
